FAERS Safety Report 6371066-7 (Version None)
Quarter: 2009Q3

REPORT INFORMATION
  Report Type: 
  Country: None (occurrence: None)
  Receive Date: 20090918
  Receipt Date: 20090903
  Transmission Date: 20100115
  Serious: Yes (Death)
  Sender: FDA-Public Use
  Company Number: A-CH2009-27351

PATIENT
  Sex: Female

DRUGS (6)
  1. TRACLEER [Suspect]
     Indication: PULMONARY ARTERIAL HYPERTENSION
     Dosage: ORAL
     Route: 048
     Dates: start: 20071101
  2. VENTAVIS [Suspect]
     Indication: PULMONARY ARTERIAL HYPERTENSION
     Dates: start: 20080801
  3. REVATIO [Concomitant]
  4. OXYGEN (OXYGEN) [Concomitant]
  5. ANALGESICS [Concomitant]
  6. DIURETICS [Concomitant]

REACTIONS (1)
  - DEATH [None]
